FAERS Safety Report 7796219-2 (Version None)
Quarter: 2011Q4

REPORT INFORMATION
  Report Type: 
  Country: None (occurrence: None)
  Receive Date: 20111004
  Receipt Date: 20111004
  Transmission Date: 20120403
  Serious: Yes (Hospitalization, Other)
  Sender: FDA-Public Use
  Company Number: US-ABBOTT-11P-163-0836155-00

PATIENT
  Sex: Female
  Weight: 40.406 kg

DRUGS (13)
  1. TRAMADOL HCL [Concomitant]
     Indication: PAIN
  2. PERCOCET [Concomitant]
     Indication: PAIN
  3. HUMIRA [Suspect]
     Indication: CROHN'S DISEASE
     Dates: start: 20101001
  4. ROYAL JELLY [Concomitant]
     Indication: VITAMIN SUPPLEMENTATION
  5. MULTI-VITAMIN [Concomitant]
     Indication: VITAMIN SUPPLEMENTATION
  6. L-CARNITINE [Concomitant]
     Indication: VITAMIN SUPPLEMENTATION
  7. PROBIOTICS [Concomitant]
     Indication: GASTROINTESTINAL DISORDER
  8. ZANTAC [Concomitant]
     Indication: PRODUCT USED FOR UNKNOWN INDICATION
  9. HUMIRA [Suspect]
     Dates: start: 20110605
  10. COQ10 [Concomitant]
     Indication: VITAMIN SUPPLEMENTATION
  11. ATIVAN [Concomitant]
     Indication: ANXIETY
  12. FISH OIL [Concomitant]
     Indication: PRODUCT USED FOR UNKNOWN INDICATION
  13. AMBIEN [Concomitant]
     Indication: PRODUCT USED FOR UNKNOWN INDICATION

REACTIONS (10)
  - INTESTINAL OBSTRUCTION [None]
  - INSOMNIA [None]
  - URINARY TRACT INFECTION [None]
  - WEIGHT DECREASED [None]
  - ARTHRALGIA [None]
  - ABDOMINAL PAIN [None]
  - FATIGUE [None]
  - DRUG INEFFECTIVE [None]
  - CROHN'S DISEASE [None]
  - UPPER RESPIRATORY TRACT INFECTION [None]
